FAERS Safety Report 20224412 (Version 1)
Quarter: 2021Q4

REPORT INFORMATION
  Report Type: Spontaneous
  Country: US (occurrence: None)
  Receive Date: 20211223
  Receipt Date: 20211223
  Transmission Date: 20220303
  Serious: Yes (Other)
  Sender: FDA-Public Use
  Company Number: None

PATIENT
  Age: 11 Year
  Sex: Female
  Weight: 47.25 kg

DRUGS (1)
  1. POLYETHYLENE GLYCOL [Suspect]
     Active Substance: POLYETHYLENE GLYCOL
     Indication: Constipation
     Dates: start: 20211201, end: 20211201

REACTIONS (13)
  - Erythema [None]
  - Flushing [None]
  - Dyspnoea [None]
  - Pruritus [None]
  - Tremor [None]
  - Chills [None]
  - Chills [None]
  - Heart rate increased [None]
  - Peripheral coldness [None]
  - Emotional distress [None]
  - Anaphylactic reaction [None]
  - Conjunctival hyperaemia [None]
  - Hypersensitivity [None]

NARRATIVE: CASE EVENT DATE: 20211201
